FAERS Safety Report 5327247-4 (Version None)
Quarter: 2007Q2

REPORT INFORMATION
  Report Type: 
  Country: None (occurrence: None)
  Receive Date: 20070517
  Receipt Date: 20070510
  Transmission Date: 20071010
  Serious: Yes (Death, Other)
  Sender: FDA-Public Use
  Company Number: FR-AVENTIS-200711838EU

PATIENT
  Age: 87 Year
  Sex: Female

DRUGS (6)
  1. FLODIL                             /00646501/ [Suspect]
     Route: 048
  2. FUROSEMIDE [Suspect]
     Indication: CARDIAC FAILURE
     Route: 048
  3. ODRIK [Suspect]
     Indication: CARDIAC FAILURE
     Route: 048
  4. DIGOXIN [Suspect]
     Indication: CARDIAC FAILURE
     Route: 048
  5. TILDIEM LP [Suspect]
     Route: 048
  6. SOLUPRED                           /00016201/ [Concomitant]
     Dosage: DOSE: UNK

REACTIONS (5)
  - CARDIAC ARREST [None]
  - DEATH [None]
  - DRUG TOXICITY [None]
  - DYSPEPSIA [None]
  - RESPIRATORY ARREST [None]
